FAERS Safety Report 8270294-3 (Version None)
Quarter: 2012Q2

REPORT INFORMATION
  Report Type: 
  Country: None (occurrence: None)
  Receive Date: 20120410
  Receipt Date: 20120404
  Transmission Date: 20120825
  Serious: Yes (Death)
  Sender: FDA-Public Use
  Company Number: FR-AMGEN-FRASP2012014989

PATIENT
  Age: 94 Year
  Sex: Female
  Weight: 46.6 kg

DRUGS (6)
  1. ATACAND [Concomitant]
     Indication: HYPERTENSION
     Dosage: UNK UNK, QD
     Route: 048
  2. LYRICA [Concomitant]
     Dosage: UNK UNK, BID
     Route: 048
     Dates: start: 20111214
  3. CINACALCET HYDROCHLORIDE [Suspect]
     Indication: PRODUCT USED FOR UNKNOWN INDICATION
     Dosage: 30 MG, BID
     Route: 048
     Dates: start: 20110601, end: 20120302
  4. NEXIUM [Concomitant]
     Indication: GASTROOESOPHAGEAL REFLUX DISEASE
     Dosage: UNK UNK, QD
     Route: 048
     Dates: start: 20110609
  5. FOLIC ACID [Concomitant]
     Indication: FOLATE DEFICIENCY
     Dosage: UNK UNK, BID
     Route: 048
  6. DOMPERIDONE [Concomitant]
     Indication: NAUSEA
     Dosage: UNK UNK, QD
     Route: 048
     Dates: start: 20110609

REACTIONS (4)
  - MALNUTRITION [None]
  - FATIGUE [None]
  - NASOPHARYNGITIS [None]
  - DEATH [None]
